FAERS Safety Report 4352027-6 (Version None)
Quarter: 2004Q2

REPORT INFORMATION
  Report Type: 
  Country: None (occurrence: None)
  Receive Date: 20040503
  Receipt Date: 20040407
  Transmission Date: 20050107
  Serious: Yes (Hospitalization)
  Sender: FDA-Public Use
  Company Number: US-MERCK-0404USA01050

PATIENT
  Age: 50 Year
  Sex: Female

DRUGS (3)
  1. ZETIA [Suspect]
     Indication: HYPERCHOLESTEROLAEMIA
     Route: 048
  2. LOPID [Concomitant]
     Route: 065
  3. LIPASE [Concomitant]
     Route: 065

REACTIONS (1)
  - PANCREATITIS [None]
